FAERS Safety Report 15292377 (Version 1)
Quarter: 2018Q3

REPORT INFORMATION
  Report Type: Spontaneous
  Country: US (occurrence: US)
  Receive Date: 20180806
  Receipt Date: 20180806
  Transmission Date: 20181010
  Serious: No
  Sender: FDA-Public Use
  Company Number: None

PATIENT
  Age: 88 Year
  Sex: Male
  Weight: 89.1 kg

DRUGS (24)
  1. E [Concomitant]
  2. VITAMIN B12 [Concomitant]
     Active Substance: CYANOCOBALAMIN
  3. MSM [Concomitant]
     Active Substance: DIMETHYL SULFONE
  4. FOLIC ACID. [Concomitant]
     Active Substance: FOLIC ACID
  5. BILBERRY [Concomitant]
     Active Substance: BILBERRY
  6. TRAZODONE [Suspect]
     Active Substance: TRAZODONE HYDROCHLORIDE
     Indication: SLEEP DISORDER
     Dosage: ?          QUANTITY:2 TABLET(S);?
     Route: 048
  7. XANAX [Concomitant]
     Active Substance: ALPRAZOLAM
  8. B6 [Concomitant]
     Active Substance: PYRIDOXINE HYDROCHLORIDE
  9. C [Concomitant]
  10. GLUCOSAMINE CHONDROITIN [Concomitant]
     Active Substance: CHONDROITIN SULFATE (BOVINE)\GLUCOSAMINE HYDROCHLORIDE
  11. MILK THISTLE [Concomitant]
     Active Substance: DIETARY SUPPLEMENT\HERBALS\MILK THISTLE
  12. COPPER CHLORIDE [Concomitant]
     Active Substance: CUPRIC CHLORIDE
  13. LISINOPRIL. [Concomitant]
     Active Substance: LISINOPRIL
  14. PROCARDIA XL [Concomitant]
     Active Substance: NIFEDIPINE
  15. ZINC. [Concomitant]
     Active Substance: ZINC
  16. CLONIDINE. [Concomitant]
     Active Substance: CLONIDINE
  17. LOW DOSE ASPIRIN [Concomitant]
     Active Substance: ASPIRIN
  18. LUTEIN [Concomitant]
     Active Substance: LUTEIN
  19. NADOLOL. [Concomitant]
     Active Substance: NADOLOL
  20. OMEGA [Concomitant]
     Active Substance: CONVALLARIA MAJALIS\CRATAEGUS LAEVIGATA LEAF\PROXYPHYLLINE
  21. FLAXSEED [Concomitant]
     Active Substance: FLAX SEED
  22. MULTIVITAMIN [Concomitant]
     Active Substance: VITAMINS
  23. PRAVASTATIN. [Concomitant]
     Active Substance: PRAVASTATIN
  24. PERCOCET [Concomitant]
     Active Substance: ACETAMINOPHEN\OXYCODONE HYDROCHLORIDE

REACTIONS (3)
  - Abnormal dreams [None]
  - Photopsia [None]
  - Memory impairment [None]

NARRATIVE: CASE EVENT DATE: 20180805
